FAERS Safety Report 4778331-5 (Version None)
Quarter: 2005Q3

REPORT INFORMATION
  Report Type: 
  Country: None (occurrence: None)
  Receive Date: 20050923
  Receipt Date: 20050923
  Transmission Date: 20060218
  Serious: No
  Sender: FDA-Public Use
  Company Number: None

PATIENT
  Sex: Male
  Weight: 81.6475 kg

DRUGS (2)
  1. CEFTRIAXONE [Suspect]
     Indication: LYME DISEASE
     Dosage: 2 GRAMS Q24H IV
     Route: 042
     Dates: start: 20050823, end: 20050912
  2. CEFTRIAXONE [Suspect]

REACTIONS (1)
  - ALANINE AMINOTRANSFERASE INCREASED [None]
